FAERS Safety Report 17248385 (Version 1)
Quarter: 2020Q1

REPORT INFORMATION
  Report Type: Spontaneous
  Country: US (occurrence: US)
  Receive Date: 20200108
  Receipt Date: 20200108
  Transmission Date: 20200409
  Serious: Yes (Hospitalization)
  Sender: FDA-Public Use
  Company Number: US-AMNEAL PHARMACEUTICALS-2019-AMRX-03449

PATIENT
  Sex: Male

DRUGS (6)
  1. GUAIFENESIN. [Suspect]
     Active Substance: GUAIFENESIN
     Dosage: 1 TABLETS, EVERY 12HR
     Route: 048
  2. GUAIFENESIN. [Suspect]
     Active Substance: GUAIFENESIN
     Dosage: 1 TABLETS, EVERY 12HR
     Route: 048
  3. GUAIFENESIN. [Suspect]
     Active Substance: GUAIFENESIN
     Dosage: 1 TABLETS, EVERY 12HR
     Route: 048
  4. GUAIFENESIN. [Suspect]
     Active Substance: GUAIFENESIN
     Indication: ANTITUSSIVE THERAPY
     Dosage: 1 TABLETS, EVERY 12HR
     Route: 048
  5. GUAIFENESIN. [Suspect]
     Active Substance: GUAIFENESIN
     Indication: SECRETION DISCHARGE
     Dosage: 1 TABLETS, EVERY 12HR
     Route: 048
  6. GUAIFENESIN. [Suspect]
     Active Substance: GUAIFENESIN
     Dosage: 1 TABLETS, EVERY 12HR
     Route: 048

REACTIONS (3)
  - Glossodynia [Recovering/Resolving]
  - Tongue discolouration [Recovering/Resolving]
  - Pneumonia [Recovering/Resolving]
